FAERS Safety Report 17439845 (Version 1)
Quarter: 2020Q1

REPORT INFORMATION
  Report Type: Spontaneous
  Country: US (occurrence: US)
  Receive Date: 20200220
  Receipt Date: 20200220
  Transmission Date: 20200409
  Serious: Yes (Hospitalization)
  Sender: FDA-Public Use
  Company Number: US-MYLANLABS-2020M1018348

PATIENT
  Sex: Male
  Weight: 117 kg

DRUGS (14)
  1. KETAMINE [Suspect]
     Active Substance: KETAMINE
     Dosage: 35 MILLIGRAM, QH
     Route: 042
  2. HYDROMORPHONE [Suspect]
     Active Substance: HYDROMORPHONE
     Indication: ANALGESIC THERAPY
     Dosage: ON DAY 1
     Route: 042
  3. LORAZEPAM. [Concomitant]
     Active Substance: LORAZEPAM
     Indication: PROPHYLAXIS
     Dosage: 0.5 MILLIGRAM, Q6H
     Route: 065
  4. KETAMINE [Suspect]
     Active Substance: KETAMINE
     Indication: WITHDRAWAL SYNDROME
     Dosage: ADMINISTERED AS CONTINUOUS INFUSION
     Route: 042
  5. HYDROMORPHONE [Suspect]
     Active Substance: HYDROMORPHONE
     Indication: COMPLEX REGIONAL PAIN SYNDROME
     Dosage: AS NEEDED
     Route: 048
  6. OXYCODONE [Suspect]
     Active Substance: OXYCODONE
     Indication: WITHDRAWAL SYNDROME
     Dosage: ADMINISTERED AS NEEDED; IMMEDIATE RELEASE
     Route: 065
  7. KETAMINE [Suspect]
     Active Substance: KETAMINE
     Dosage: ON DAY 3 OF HOSPITALISATION, HIS KETAMINE DOSE INCREASED TO 50MG/HOUR
     Route: 042
  8. CLONIDINE. [Concomitant]
     Active Substance: CLONIDINE
     Indication: PROPHYLAXIS
     Dosage: 0.3 MILLIGRAM
     Route: 065
  9. METHADONE [Suspect]
     Active Substance: METHADONE HYDROCHLORIDE
     Indication: COMPLEX REGIONAL PAIN SYNDROME
     Dosage: 30 MILLIGRAM, Q8H
     Route: 048
  10. PREGABALIN. [Concomitant]
     Active Substance: PREGABALIN
     Dosage: UNK
     Route: 065
  11. KETAMINE [Suspect]
     Active Substance: KETAMINE
     Dosage: ON DAY 4 OF HOSPITALISATION
     Route: 042
  12. LORAZEPAM. [Concomitant]
     Active Substance: LORAZEPAM
     Indication: HALLUCINATION, VISUAL
  13. ACETAMINOPHEN. [Concomitant]
     Active Substance: ACETAMINOPHEN
     Route: 065
  14. IBUPROFEN. [Concomitant]
     Active Substance: IBUPROFEN
     Dosage: UNK
     Route: 065

REACTIONS (9)
  - Nausea [Recovering/Resolving]
  - Vomiting [Recovering/Resolving]
  - Hyperhidrosis [Recovered/Resolved]
  - Withdrawal syndrome [Recovering/Resolving]
  - Hyperaesthesia [Recovering/Resolving]
  - Hallucination, visual [Recovering/Resolving]
  - Anxiety [Recovered/Resolved]
  - Hallucination, auditory [Recovering/Resolving]
  - Vision blurred [Recovering/Resolving]
